FAERS Safety Report 23822205 (Version 1)
Quarter: 2024Q2

REPORT INFORMATION
  Report Type: Report from Study
  Country: US (occurrence: US)
  Receive Date: 20240506
  Receipt Date: 20240506
  Transmission Date: 20240716
  Serious: Yes (Hospitalization)
  Sender: FDA-Public Use
  Company Number: US-ALNYLAM PHARMACEUTICALS, INC.-ALN-2024-002444

PATIENT

DRUGS (1)
  1. GIVLAARI [Suspect]
     Active Substance: GIVOSIRAN SODIUM
     Indication: Product used for unknown indication
     Dosage: 155 MILLIGRAM, MONTHLY (189 MG/ML)
     Route: 058
     Dates: start: 20210920, end: 20210920

REACTIONS (6)
  - Porphyria acute [Unknown]
  - Herpes virus infection [Unknown]
  - Hormone level abnormal [Unknown]
  - Brain fog [Unknown]
  - Arthropod bite [Unknown]
  - Hypersensitivity [Unknown]
